FAERS Safety Report 11531427 (Version 2)
Quarter: 2015Q3

REPORT INFORMATION
  Report Type: Spontaneous
  Country: DE (occurrence: DE)
  Receive Date: 20150921
  Receipt Date: 20150921
  Transmission Date: 20151125
  Serious: Yes (Other)
  Sender: FDA-Public Use
  Company Number: ALCN2015DE005767

PATIENT
  Age: 74 Year
  Sex: Female

DRUGS (9)
  1. FLUOCORTOLONE [Suspect]
     Active Substance: FLUOCORTOLONE
     Indication: PRODUCT USED FOR UNKNOWN INDICATION
     Dosage: GRADUALLY REDUCED FROM 60MG
     Route: 048
  2. DEXAMETHASONE. [Suspect]
     Active Substance: DEXAMETHASONE
     Indication: INTRAOPERATIVE CARE
     Dosage: UNK
     Route: 047
  3. BETAMETHASONE. [Suspect]
     Active Substance: BETAMETHASONE
     Indication: INTRAOPERATIVE CARE
     Dosage: 1 DF, ONCE/SINGLE
     Route: 057
  4. GENTAMICIN. [Suspect]
     Active Substance: GENTAMICIN
     Indication: INTRAOPERATIVE CARE
     Dosage: UNK
     Route: 047
  5. GENTAMICIN. [Suspect]
     Active Substance: GENTAMICIN
     Indication: POSTOPERATIVE CARE
     Dosage: 1 DF, 5QD
     Route: 047
  6. DEXAMETHASONE. [Suspect]
     Active Substance: DEXAMETHASONE
     Indication: POSTOPERATIVE CARE
     Dosage: 1 DF, 5QD
     Route: 047
  7. PREDNISOLONE. [Suspect]
     Active Substance: PREDNISOLONE
     Indication: INTRAOPERATIVE CARE
     Dosage: 1 DF, ONCE/SINGLE
     Route: 042
  8. ACETAZOLAMIDE. [Suspect]
     Active Substance: ACETAZOLAMIDE
     Indication: INTRAOPERATIVE CARE
     Dosage: 1 DF, ONCE/SINGLE
     Route: 042
  9. DEXAMETHASONE. [Suspect]
     Active Substance: DEXAMETHASONE
     Indication: INTRAOPERATIVE CARE
     Dosage: 1 DF, ONCE/SINGLE
     Route: 057

REACTIONS (5)
  - Iris atrophy [Unknown]
  - Eye haemorrhage [Unknown]
  - Pupil fixed [Unknown]
  - Intraocular pressure increased [Recovered/Resolved]
  - Pupillary reflex impaired [Unknown]
